FAERS Safety Report 6614505-6 (Version None)
Quarter: 2010Q1

REPORT INFORMATION
  Report Type: 
  Country: None (occurrence: None)
  Receive Date: 20100304
  Receipt Date: 20100301
  Transmission Date: 20100710
  Serious: Yes (Other)
  Sender: FDA-Public Use
  Company Number: US-MERCK-1003USA00223

PATIENT

DRUGS (1)
  1. SINGULAIR [Suspect]
     Route: 048
     Dates: start: 20100220, end: 20100226

REACTIONS (7)
  - APHASIA [None]
  - CONFUSIONAL STATE [None]
  - DEPRESSION [None]
  - FATIGUE [None]
  - HEADACHE [None]
  - IRRITABILITY [None]
  - THINKING ABNORMAL [None]
